FAERS Safety Report 7751178-3 (Version None)
Quarter: 2011Q3

REPORT INFORMATION
  Report Type: 
  Country: None (occurrence: None)
  Receive Date: 20110914
  Receipt Date: 20070814
  Transmission Date: 20111222
  Serious: Yes (Death)
  Sender: FDA-Public Use
  Company Number: PHHY2007NL03747

PATIENT
  Sex: Male

DRUGS (2)
  1. SANDOSTATIN LAR [Suspect]
     Indication: FISTULA
     Dosage: 30 MG, ONCE PER 4 WEEKS
     Route: 065
     Dates: start: 20070530
  2. SANDOSTATIN LAR [Suspect]
     Dosage: 30 MG, ONCE PER 4 WEEKS
     Route: 065
     Dates: start: 20070724

REACTIONS (1)
  - DEATH [None]
